FAERS Safety Report 24559648 (Version 1)
Quarter: 2024Q4

REPORT INFORMATION
  Report Type: Spontaneous
  Country: CN (occurrence: CN)
  Receive Date: 20241029
  Receipt Date: 20241029
  Transmission Date: 20250114
  Serious: Yes (Hospitalization, Other)
  Sender: TERSERA THERAPEUTICS
  Company Number: CN-ASTRAZENECA-202410CHN008842CN

PATIENT

DRUGS (5)
  1. GOSERELIN [Suspect]
     Active Substance: GOSERELIN
     Indication: Neoplasm
     Dosage: 3.600 UNK, QD
     Route: 058
     Dates: start: 20240730
  2. ZOLADEX [Suspect]
     Active Substance: GOSERELIN ACETATE
     Indication: Neoplasm
     Dosage: UNK
     Route: 065
  3. PALBOCICLIB [Suspect]
     Active Substance: PALBOCICLIB
     Indication: Neoplasm
     Dosage: 0.01 DOSAGE FORM, QD
     Route: 048
     Dates: start: 20240730, end: 20240730
  4. DENOSUMAB [Suspect]
     Active Substance: DENOSUMAB
     Indication: Neoplasm
     Dosage: 0.001 GRAM, QD
     Route: 042
     Dates: start: 20240730, end: 20240730
  5. FULVESTRANT [Suspect]
     Active Substance: FULVESTRANT
     Indication: Neoplasm
     Dosage: 0.01 GRAM, QD
     Route: 042
     Dates: start: 20240730, end: 20240730

REACTIONS (1)
  - Myelosuppression [Recovering/Resolving]
